FAERS Safety Report 11501952 (Version 1)
Quarter: 2015Q3

REPORT INFORMATION
  Report Type: Spontaneous
  Country: US (occurrence: US)
  Receive Date: 20150914
  Receipt Date: 20150914
  Transmission Date: 20151125
  Serious: Yes (Other)
  Sender: FDA-Public Use
  Company Number: US-TEVA-592608USA

PATIENT
  Age: 48 Year
  Sex: Male

DRUGS (3)
  1. BEVACIZUMAB [Concomitant]
     Active Substance: BEVACIZUMAB
     Indication: ADENOCARCINOMA
     Dosage: 5 MG/KG ON DAY 1; IN A 2-WEEK CYCLE
     Route: 065
  2. OXALIPLATIN. [Concomitant]
     Active Substance: OXALIPLATIN
     Indication: ADENOCARCINOMA
     Dosage: 85 MG/M2 ON DAY 1; IN A 2-WEEK CYCLE
     Route: 065
  3. CAPECITABINE. [Suspect]
     Active Substance: CAPECITABINE
     Indication: ADENOCARCINOMA
     Dosage: MONDAYS THROUGH FRIDAYS; IN A 2-WEEK CYCLE
     Route: 048

REACTIONS (3)
  - Cardiac arrest [Recovered/Resolved]
  - Ventricular fibrillation [Recovered/Resolved]
  - Arteriospasm coronary [Recovered/Resolved]
